FAERS Safety Report 7629484-2 (Version None)
Quarter: 2011Q3

REPORT INFORMATION
  Report Type: 
  Country: None (occurrence: None)
  Receive Date: 20110722
  Receipt Date: 20110714
  Transmission Date: 20111222
  Serious: Yes (Life-Threatening, Hospitalization, Other)
  Sender: FDA-Public Use
  Company Number: GB-ABBOTT-11P-167-0839177-00

PATIENT
  Sex: Male

DRUGS (3)
  1. AZATHIOPRINE [Concomitant]
     Indication: PRODUCT USED FOR UNKNOWN INDICATION
     Dates: start: 20090928, end: 20091015
  2. PREDNISOLONE [Concomitant]
     Indication: RHEUMATOID ARTHRITIS
  3. HUMIRA [Suspect]
     Indication: RHEUMATOID ARTHRITIS
     Route: 058
     Dates: start: 20050603, end: 20050909

REACTIONS (8)
  - BLADDER CANCER [None]
  - BLADDER NEOPLASM [None]
  - ANGINA PECTORIS [None]
  - HYPERKALAEMIA [None]
  - C-REACTIVE PROTEIN INCREASED [None]
  - HAEMATURIA [None]
  - RENAL IMPAIRMENT [None]
  - ELECTROCARDIOGRAM T WAVE PEAKED [None]
